FAERS Safety Report 5659535-6 (Version None)
Quarter: 2008Q1

REPORT INFORMATION
  Report Type: 
  Country: None (occurrence: None)
  Receive Date: 20080307
  Receipt Date: 20080307
  Transmission Date: 20080703
  Serious: Yes (Disabling, Other)
  Sender: FDA-Public Use
  Company Number: None

PATIENT
  Sex: Female
  Weight: 68.0396 kg

DRUGS (2)
  1. LEVAQUIN [Suspect]
     Indication: SINUSITIS
     Dosage: 75 MG 1 TAB/DAY X 3 DAYS PO
     Route: 048
     Dates: start: 20080214, end: 20080219
  2. LEVAQUIN [Suspect]
     Dosage: 500MG  1 TAB DAILY/11 DAY PO
     Route: 048

REACTIONS (6)
  - AGITATION [None]
  - HYPERTENSION [None]
  - NERVOUS SYSTEM DISORDER [None]
  - NERVOUSNESS [None]
  - NIGHTMARE [None]
  - SCREAMING [None]
